FAERS Safety Report 25860003 (Version 1)
Quarter: 2025Q3

REPORT INFORMATION
  Report Type: Spontaneous
  Country: AU (occurrence: AU)
  Receive Date: 20250929
  Receipt Date: 20250929
  Transmission Date: 20251021
  Serious: Yes (Other)
  Sender: ELI LILLY AND COMPANY
  Company Number: AU-ELI_LILLY_AND_COMPANY-AU202509015680

PATIENT
  Age: 43 Year
  Sex: Female

DRUGS (1)
  1. MOUNJARO [Suspect]
     Active Substance: TIRZEPATIDE
     Indication: Product used for unknown indication
     Route: 065
     Dates: start: 20250616, end: 20250616

REACTIONS (12)
  - Suicidal ideation [Unknown]
  - Fear [Unknown]
  - Sleep disorder due to general medical condition, insomnia type [Recovering/Resolving]
  - Illness [Unknown]
  - Vomiting projectile [Unknown]
  - Dissociative disorder [Unknown]
  - Panic attack [Recovering/Resolving]
  - Feeding disorder [Unknown]
  - Hypotension [Unknown]
  - Abdominal discomfort [Unknown]
  - Constipation [Unknown]
  - Nausea [Unknown]

NARRATIVE: CASE EVENT DATE: 20250101
